FAERS Safety Report 5614628-4 (Version None)
Quarter: 2008Q1

REPORT INFORMATION
  Report Type: 
  Country: None (occurrence: None)
  Receive Date: 20080131
  Receipt Date: 20080122
  Transmission Date: 20080703
  Serious: Yes (Hospitalization, Other)
  Sender: FDA-Public Use
  Company Number: 2007US001541

PATIENT
  Age: 64 Year
  Sex: Male

DRUGS (19)
  1. PROGRAF [Suspect]
     Indication: LIVER TRANSPLANT
     Dosage: 9 MG, UID/QD, ORAL; 9 MG, UID/QD, ORAL
     Route: 048
     Dates: start: 20070316, end: 20070621
  2. PROGRAF [Suspect]
     Indication: LIVER TRANSPLANT
     Dosage: 9 MG, UID/QD, ORAL; 9 MG, UID/QD, ORAL
     Route: 048
     Dates: start: 20070623
  3. MYCOPHENOLATE MOFETIL [Suspect]
     Indication: LIVER TRANSPLANT
     Dosage: 750 MG, BID, ORAL; 1 G, BID, ORAL
     Route: 048
     Dates: start: 20070316, end: 20070620
  4. MYCOPHENOLATE MOFETIL [Suspect]
     Indication: LIVER TRANSPLANT
     Dosage: 750 MG, BID, ORAL; 1 G, BID, ORAL
     Route: 048
     Dates: start: 20070629, end: 20070812
  5. PRILOSEC [Concomitant]
  6. BACTRIM [Concomitant]
  7. MAGNESIUM [Concomitant]
  8. URSODIOL (URSODEOXYCHOLIC ACID) [Concomitant]
  9. LASIX [Concomitant]
  10. VALCYTE [Concomitant]
  11. STARLIX [Concomitant]
  12. INSULIN GLARGINE (INSULIN GLARGINE) [Concomitant]
  13. ULTRAM [Concomitant]
  14. DILAUDID [Concomitant]
  15. NEUPOGEN [Concomitant]
  16. FLUCONAZOLE [Concomitant]
  17. METRONIDAZOLE [Concomitant]
  18. PIPERACILLIN SODIUM W/TAZOBACTAM (PIPERACILLIN SODIUM, TAZOBACTAM) [Concomitant]
  19. VANCOMYCIN [Concomitant]

REACTIONS (31)
  - ADRENAL NEOPLASM [None]
  - ARTERIOSCLEROSIS CORONARY ARTERY [None]
  - ATELECTASIS [None]
  - BENIGN LUNG NEOPLASM [None]
  - BILOMA [None]
  - BRAIN SCAN ABNORMAL [None]
  - BRONCHIECTASIS [None]
  - CAECITIS [None]
  - CEREBRAL DISORDER [None]
  - CYST [None]
  - DISEASE RECURRENCE [None]
  - DIVERTICULUM INTESTINAL [None]
  - FEBRILE NEUTROPENIA [None]
  - FIBROSIS [None]
  - GASTROINTESTINAL DISORDER [None]
  - GASTROINTESTINAL FUNGAL INFECTION [None]
  - GYNAECOMASTIA [None]
  - HEPATIC CYST [None]
  - ILL-DEFINED DISORDER [None]
  - INFECTION [None]
  - LIVER DISORDER [None]
  - LUNG ABSCESS [None]
  - LUNG NEOPLASM [None]
  - MENTAL STATUS CHANGES [None]
  - METAPLASIA [None]
  - NERVOUS SYSTEM DISORDER [None]
  - PLATELET COUNT DECREASED [None]
  - PLEURAL EFFUSION [None]
  - SPLENOMEGALY [None]
  - VASCULAR CALCIFICATION [None]
  - WHITE BLOOD CELL COUNT DECREASED [None]
